FAERS Safety Report 7830781-6 (Version None)
Quarter: 2011Q4

REPORT INFORMATION
  Report Type: 
  Country: None (occurrence: None)
  Receive Date: 20111021
  Receipt Date: 20111018
  Transmission Date: 20120403
  Serious: Yes (Other)
  Sender: FDA-Public Use
  Company Number: CA-GLAXOSMITHKLINE-A0932789A

PATIENT
  Sex: Female
  Weight: 65 kg

DRUGS (7)
  1. VITAMINS + MINERALS [Concomitant]
  2. LIPITOR [Concomitant]
  3. LOTRIDERM [Concomitant]
     Indication: SKIN INFECTION
  4. ADVAIR DISKUS 100/50 [Suspect]
     Indication: ASTHMA
     Dosage: 1PUFF TWICE PER DAY
     Route: 055
  5. SYNTHROID [Concomitant]
  6. ASPIRIN [Concomitant]
  7. SINGULAIR [Concomitant]

REACTIONS (13)
  - BRONCHOPNEUMONIA [None]
  - URINARY TRACT INFECTION [None]
  - RESPIRATORY DISTRESS [None]
  - PRODUCT QUALITY ISSUE [None]
  - PRODUCTIVE COUGH [None]
  - INFECTION [None]
  - GASTROOESOPHAGEAL REFLUX DISEASE [None]
  - PNEUMONIA [None]
  - COUGH [None]
  - DYSPNOEA [None]
  - BRONCHITIS [None]
  - SKIN BACTERIAL INFECTION [None]
  - DRUG INEFFECTIVE [None]
